FAERS Safety Report 8795473 (Version 2)
Quarter: 2015Q2

REPORT INFORMATION
  Report Type: Report from Study
  Country: US (occurrence: US)
  Receive Date: 20120917
  Receipt Date: 20150623
  Transmission Date: 20150821
  Serious: Yes (Death)
  Sender: FDA-Public Use
  Company Number: US-ROCHE-1128362

PATIENT
  Sex: Female

DRUGS (4)
  1. AVASTIN [Suspect]
     Active Substance: BEVACIZUMAB
     Indication: RENAL CANCER
     Route: 040
     Dates: start: 20050330
  2. LORTAB (UNITED STATES) [Concomitant]
  3. AVASTIN [Suspect]
     Active Substance: BEVACIZUMAB
     Indication: HAEMATOLOGICAL MALIGNANCY
     Route: 040
  4. ZOMETA [Concomitant]
     Active Substance: ZOLEDRONIC ACID
     Route: 040

REACTIONS (4)
  - Musculoskeletal pain [Recovered/Resolved]
  - Local swelling [Unknown]
  - Off label use [Unknown]
  - Death [Fatal]
